FAERS Safety Report 12519487 (Version 3)
Quarter: 2016Q3

REPORT INFORMATION
  Report Type: Spontaneous
  Country: FR (occurrence: FR)
  Receive Date: 20160630
  Receipt Date: 20160902
  Transmission Date: 20161109
  Serious: Yes (Hospitalization, Other)
  Sender: FDA-Public Use
  Company Number: FR-TEVA-671909ISR

PATIENT
  Age: 59 Year
  Sex: Male

DRUGS (8)
  1. PREDNISONE. [Interacting]
     Active Substance: PREDNISONE
     Indication: IMMUNOSUPPRESSANT DRUG THERAPY
     Dosage: 10 MILLIGRAM DAILY;
     Route: 065
  2. TACROLIMUS. [Interacting]
     Active Substance: TACROLIMUS
     Indication: IMMUNOSUPPRESSANT DRUG THERAPY
     Dosage: 3.5 G DAILY
     Route: 065
  3. MYCOPHENOLATE MOFETIL. [Suspect]
     Active Substance: MYCOPHENOLATE MOFETIL
     Indication: IMMUNOSUPPRESSANT DRUG THERAPY
     Dosage: 2 GRAM DAILY;
     Route: 065
  4. ITRACONAZOLE. [Interacting]
     Active Substance: ITRACONAZOLE
     Dosage: 400 MILLIGRAM DAILY;
     Route: 065
  5. AMOXICILLIN, CLAVULANIC ACID [Concomitant]
     Active Substance: AMOXICILLIN\CLAVULANIC ACID
     Indication: PHAEHYPHOMYCOSIS
     Route: 065
  6. ITRACONAZOLE. [Interacting]
     Active Substance: ITRACONAZOLE
     Indication: PHAEHYPHOMYCOSIS
     Dosage: 300 MILLIGRAM DAILY;
     Route: 065
  7. TACROLIMUS. [Interacting]
     Active Substance: TACROLIMUS
     Indication: IMMUNOSUPPRESSANT DRUG THERAPY
     Dosage: 3.5 GRAM DAILY;
     Route: 065
  8. POSACONAZOLE [Interacting]
     Active Substance: POSACONAZOLE
     Indication: PHAEHYPHOMYCOSIS
     Dosage: 800 MILLIGRAM DAILY;
     Route: 065

REACTIONS (7)
  - Immunosuppressant drug level increased [Recovered/Resolved]
  - Condition aggravated [Recovering/Resolving]
  - Purulent discharge [Recovering/Resolving]
  - Pain [Recovering/Resolving]
  - Drug interaction [Recovered/Resolved]
  - Abscess [Recovering/Resolving]
  - Phaehyphomycosis [Recovering/Resolving]
